FAERS Safety Report 8420501 (Version 2)
Quarter: 2013Q1

REPORT INFORMATION
  Report Type: Report from Study
  Country: GB (occurrence: GB)
  Receive Date: 20120222
  Receipt Date: 20130117
  Transmission Date: 20140127
  Serious: Yes (Hospitalization, Other)
  Sender: FDA-Public Use
  Company Number: GB-JNJFOC-20100407229

PATIENT
  Age: 30 Year
  Sex: Female
  Weight: 48 kg

DRUGS (8)
  1. REMICADE [Suspect]
     Indication: CROHN^S DISEASE
     Dosage: 11:00-13:00
     Route: 042
     Dates: start: 20080620
  2. REMICADE [Suspect]
     Indication: CROHN^S DISEASE
     Dosage: 10:00-12:30
     Route: 042
     Dates: start: 20081014
  3. REMICADE [Suspect]
     Indication: CROHN^S DISEASE
     Dosage: 1300-1400
     Route: 042
     Dates: start: 20080731
  4. REMICADE [Suspect]
     Indication: CROHN^S DISEASE
     Dosage: 13:00-14:00
     Route: 042
     Dates: start: 20080909
  5. REMICADE [Suspect]
     Indication: CROHN^S DISEASE
     Dosage: 10:00-12:00
     Route: 042
     Dates: start: 20080506
  6. ADALIMUMAB [Suspect]
     Indication: CROHN^S DISEASE
     Dates: start: 200812, end: 201003
  7. PREDNISOLONE [Concomitant]
     Indication: CROHN^S DISEASE
     Dates: start: 2008, end: 201003
  8. PREDNISOLONE [Concomitant]
     Indication: CROHN^S DISEASE
     Dates: start: 201003, end: 201003

REACTIONS (3)
  - Caesarean section [Unknown]
  - Exposure during pregnancy [Recovered/Resolved]
  - Crohn^s disease [Recovered/Resolved]
